FAERS Safety Report 6648765-2 (Version None)
Quarter: 2010Q1

REPORT INFORMATION
  Report Type: 
  Country: None (occurrence: None)
  Receive Date: 20100324
  Receipt Date: 20100315
  Transmission Date: 20100710
  Serious: Yes (Other)
  Sender: FDA-Public Use
  Company Number: JP-PFIZER INC-2010034657

PATIENT
  Age: 81 Year
  Sex: Male

DRUGS (1)
  1. NORVASC [Suspect]
     Dosage: 5 MG DAILY
     Route: 048
     Dates: start: 20091017

REACTIONS (2)
  - BILE DUCT STONE [None]
  - HEPATIC FUNCTION ABNORMAL [None]
